FAERS Safety Report 24578699 (Version 1)
Quarter: 2024Q4

REPORT INFORMATION
  Report Type: Spontaneous
  Country: BR (occurrence: BR)
  Receive Date: 20241105
  Receipt Date: 20241105
  Transmission Date: 20250115
  Serious: Yes (Other)
  Sender: Unknown Manufacturer
  Company Number: BR-AstraZeneca-CH-00731982A

PATIENT

DRUGS (6)
  1. METOPROLOL SUCCINATE [Suspect]
     Active Substance: METOPROLOL SUCCINATE
     Indication: Hypertension
     Dosage: 100 MILLIGRAM, BID
     Route: 048
     Dates: start: 2014, end: 202409
  2. METOPROLOL SUCCINATE [Suspect]
     Active Substance: METOPROLOL SUCCINATE
     Dosage: 100.0 MILLIGRAM, EVERY MORNING
     Route: 048
     Dates: start: 202409
  3. METOPROLOL SUCCINATE [Suspect]
     Active Substance: METOPROLOL SUCCINATE
     Dosage: UNK (HALF A TABLET OF 100MG IN THE MORNING)
     Route: 048
     Dates: start: 202410
  4. PROBID [Concomitant]
     Indication: Product used for unknown indication
     Dosage: UNK
     Route: 065
  5. COGMAX [Concomitant]
     Indication: Product used for unknown indication
     Dosage: UNK
  6. LORATADINE [Concomitant]
     Active Substance: LORATADINE
     Indication: Rhinitis
     Dosage: 10 MILLIGRAM
     Route: 065

REACTIONS (10)
  - Glaucoma [Unknown]
  - Syncope [Unknown]
  - Blood pressure fluctuation [Unknown]
  - Limb discomfort [Unknown]
  - Lactose intolerance [Not Recovered/Not Resolved]
  - Hypotension [Not Recovered/Not Resolved]
  - Blood pressure decreased [Unknown]
  - Somnolence [Unknown]
  - Product physical issue [Unknown]
  - Off label use [Recovered/Resolved]

NARRATIVE: CASE EVENT DATE: 20180101
